FAERS Safety Report 5926308-6 (Version None)
Quarter: 2008Q4

REPORT INFORMATION
  Report Type: 
  Country: None (occurrence: None)
  Receive Date: 20081017
  Receipt Date: 20081010
  Transmission Date: 20090506
  Serious: Yes (Other)
  Sender: FDA-Public Use
  Company Number: 2008AL010839

PATIENT
  Age: 51 Year
  Sex: Male

DRUGS (1)
  1. ACETAMINOPHEN AND CODEINE PHOSPHATE [Suspect]
     Indication: MUSCLE STRAIN
     Dosage: 2 DF;QID;PO
     Route: 048
     Dates: start: 20080601, end: 20080601

REACTIONS (6)
  - HEPATITIS [None]
  - IMPAIRED WORK ABILITY [None]
  - MALAISE [None]
  - PAIN IN EXTREMITY [None]
  - PLATELET COUNT INCREASED [None]
  - THROMBOCYTHAEMIA [None]
